FAERS Safety Report 6252307-3 (Version None)
Quarter: 2009Q3

REPORT INFORMATION
  Report Type: 
  Country: None (occurrence: None)
  Receive Date: 20090701
  Receipt Date: 20090619
  Transmission Date: 20100115
  Serious: Yes (Other)
  Sender: FDA-Public Use
  Company Number: GR-RANBAXY-2009RR-25197

PATIENT
  Age: 70 Year
  Sex: Female

DRUGS (2)
  1. CIPROFLOXACIN [Suspect]
     Indication: CHOLECYSTITIS
     Dosage: 400 MG, BID
     Route: 042
  2. SOTALOL HYDROCHLORIDE [Concomitant]

REACTIONS (1)
  - LONG QT SYNDROME [None]
